FAERS Safety Report 18282028 (Version 1)
Quarter: 2020Q3

REPORT INFORMATION
  Report Type: Spontaneous
  Country: US (occurrence: US)
  Receive Date: 20200917
  Receipt Date: 20200917
  Transmission Date: 20201103
  Serious: Yes (Other)
  Sender: FDA-Public Use
  Company Number: None

PATIENT
  Age: 61 Year
  Sex: Female

DRUGS (9)
  1. PROLIA [Suspect]
     Active Substance: DENOSUMAB
     Indication: OSTEOPOROTIC FRACTURE
     Dosage: OTHER FREQUENCY:Q 6 MONTH ;?
     Route: 058
     Dates: start: 20190220
  2. PREDNISONE. [Concomitant]
     Active Substance: PREDNISONE
  3. VITAMIN D?1000 [Concomitant]
  4. AMLODIPINE BESYLATE/BENAZ [Concomitant]
  5. HYDROXYCLOROQUINE SULFAT [Concomitant]
  6. IRON [Concomitant]
     Active Substance: IRON
  7. PROLIA [Suspect]
     Active Substance: DENOSUMAB
     Indication: SENILE OSTEOPOROSIS
     Dosage: OTHER FREQUENCY:Q 6 MONTH ;?
     Route: 058
     Dates: start: 20190220
  8. PANTOPRAZOLE SODIUM. [Concomitant]
     Active Substance: PANTOPRAZOLE SODIUM
  9. LOSARTAN POSTSSIUM [Concomitant]

REACTIONS (1)
  - Liver disorder [None]
